FAERS Safety Report 21006018 (Version 1)
Quarter: 2022Q2

REPORT INFORMATION
  Report Type: Spontaneous
  Country: US (occurrence: US)
  Receive Date: 20220624
  Receipt Date: 20220624
  Transmission Date: 20220721
  Serious: No
  Sender: FDA-Public Use
  Company Number: US-SUNOVION-2022SUN001895

PATIENT
  Age: 66 Year
  Sex: Male

DRUGS (1)
  1. KYNMOBI [Suspect]
     Active Substance: APOMORPHINE HYDROCHLORIDE
     Indication: Parkinson^s disease
     Dosage: UNK UNK, AS NECESSARY (VERY 2 HOURS UP TO 5 TIMES PER DAY AS NEEDED)
     Route: 060

REACTIONS (3)
  - Abdominal discomfort [Unknown]
  - Lethargy [Unknown]
  - Fatigue [Unknown]

NARRATIVE: CASE EVENT DATE: 20220620
